FAERS Safety Report 8300311 (Version 2)
Quarter: 2015Q1

REPORT INFORMATION
  Report Type: Spontaneous
  Country: US (occurrence: US)
  Receive Date: 20111219
  Receipt Date: 20150107
  Transmission Date: 20150721
  Serious: No
  Sender: FDA-Public Use
  Company Number: US-ASTRAZENECA-2010SE58794

PATIENT
  Age: 80 Year
  Sex: Female

DRUGS (14)
  1. BYETTA [Concomitant]
     Active Substance: EXENATIDE
  2. NOVOLOG [Concomitant]
     Active Substance: INSULIN ASPART
     Dosage: 70/30
  3. POTASSIUM [Concomitant]
     Active Substance: POTASSIUM
     Indication: DIURETIC THERAPY
  4. SYMBICORT [Suspect]
     Active Substance: BUDESONIDE\FORMOTEROL FUMARATE DIHYDRATE
     Route: 055
  5. CRESTOR [Suspect]
     Active Substance: ROSUVASTATIN CALCIUM
     Route: 048
  6. ASPIRIN. [Concomitant]
     Active Substance: ASPIRIN
  7. LISINOPRIL. [Suspect]
     Active Substance: LISINOPRIL
     Route: 048
  8. ALBUTEROL. [Concomitant]
     Active Substance: ALBUTEROL
  9. BYETTA [Concomitant]
     Active Substance: EXENATIDE
  10. LYRICA [Concomitant]
     Active Substance: PREGABALIN
  11. LASIX [Concomitant]
     Active Substance: FUROSEMIDE
     Indication: DIURETIC THERAPY
  12. MULTIVITAMIN [Concomitant]
     Active Substance: VITAMINS
  13. AMARYL [Concomitant]
     Active Substance: GLIMEPIRIDE
  14. SPIROLACTONE [Concomitant]
     Active Substance: SPIRONOLACTONE
     Indication: DIURETIC THERAPY

REACTIONS (5)
  - Nasopharyngitis [Unknown]
  - Tremor [Unknown]
  - Dyspnoea [Unknown]
  - Malaise [Unknown]
  - Drug hypersensitivity [Unknown]
